FAERS Safety Report 18928449 (Version 1)
Quarter: 2021Q1

REPORT INFORMATION
  Report Type: Spontaneous
  Country: US (occurrence: US)
  Receive Date: 20210223
  Receipt Date: 20210223
  Transmission Date: 20210420
  Serious: Yes (Hospitalization, Other)
  Sender: FDA-Public Use
  Company Number: US-B.I. PHARMACEUTICALS,INC./RIDGEFIELD-2021-BI-084074

PATIENT
  Age: 81 Year
  Sex: Male

DRUGS (2)
  1. OFEV [Suspect]
     Active Substance: NINTEDANIB
     Indication: IDIOPATHIC PULMONARY FIBROSIS
     Dosage: 100 MG BID
     Route: 065
     Dates: start: 2020
  2. METFORMIN [METFORMIN HYDROCHLORIDE] [Concomitant]
     Active Substance: METFORMIN HYDROCHLORIDE
     Indication: PRODUCT USED FOR UNKNOWN INDICATION
     Route: 065

REACTIONS (6)
  - Respiration abnormal [Recovered/Resolved]
  - Dyspnoea [Recovered/Resolved]
  - Foreign body in throat [Recovered/Resolved]
  - Pulmonary oedema [Recovered/Resolved]
  - Throat irritation [Recovered/Resolved]
  - Pneumonia [Recovered/Resolved]

NARRATIVE: CASE EVENT DATE: 20210131
